FAERS Safety Report 4306925-X (Version None)
Quarter: 2004Q1

REPORT INFORMATION
  Report Type: 
  Country: None (occurrence: None)
  Receive Date: 20040227
  Receipt Date: 20040219
  Transmission Date: 20041129
  Serious: Yes (Hospitalization, Disabling, Other)
  Sender: FDA-Public Use
  Company Number: WAES 0402USA01816

PATIENT
  Age: 75 Year
  Sex: Male

DRUGS (2)
  1. PEPCID [Suspect]
     Route: 048
     Dates: start: 20040216, end: 20040218
  2. PENTCILLIN [Suspect]
     Route: 042
     Dates: start: 20040216, end: 20040218

REACTIONS (6)
  - ALANINE AMINOTRANSFERASE INCREASED [None]
  - ASPARTATE AMINOTRANSFERASE INCREASED [None]
  - BLOOD LACTATE DEHYDROGENASE INCREASED [None]
  - CARDIAC FAILURE ACUTE [None]
  - PLEURAL EFFUSION [None]
  - RENAL FAILURE ACUTE [None]
